FAERS Safety Report 4877547-7 (Version None)
Quarter: 2006Q1

REPORT INFORMATION
  Report Type: 
  Country: None (occurrence: None)
  Receive Date: 20060109
  Receipt Date: 20060109
  Transmission Date: 20060701
  Serious: Yes (Other)
  Sender: FDA-Public Use
  Company Number: None

PATIENT
  Age: 54 Year
  Sex: Male
  Weight: 77.1115 kg

DRUGS (1)
  1. VIOXX [Suspect]
     Indication: OSTEOARTHRITIS
     Dosage: 25 MG QD PO
     Route: 048
     Dates: start: 19870821, end: 20040517

REACTIONS (5)
  - BLOOD UREA INCREASED [None]
  - EYE DISORDER [None]
  - OPTIC ISCHAEMIC NEUROPATHY [None]
  - SWELLING [None]
  - VISUAL FIELD DEFECT [None]
